FAERS Safety Report 10181123 (Version 1)
Quarter: 2014Q2

REPORT INFORMATION
  Report Type: Spontaneous
  Country: US (occurrence: US)
  Receive Date: 20140519
  Receipt Date: 20140519
  Transmission Date: 20141212
  Serious: No
  Sender: FDA-Public Use
  Company Number: US-AMGEN INC.-USASP2014026098

PATIENT
  Sex: Female

DRUGS (4)
  1. PROLIA [Suspect]
     Indication: OSTEOPOROSIS POSTMENOPAUSAL
     Dosage: UNK
     Route: 065
  2. SIMVASTATIN [Concomitant]
     Dosage: UNK
  3. CALCIUM [Concomitant]
     Dosage: UNK
  4. VITAMIN D [Concomitant]
     Dosage: 50K, QMO

REACTIONS (10)
  - Skin disorder [Unknown]
  - Dry skin [Unknown]
  - Alopecia [Unknown]
  - Hair texture abnormal [Unknown]
  - Lip dry [Unknown]
  - Lip haemorrhage [Unknown]
  - Muscle twitching [Unknown]
  - Drug administration error [Unknown]
  - Thyroid function test abnormal [Unknown]
  - Erythema [Unknown]
